FAERS Safety Report 24912160 (Version 1)
Quarter: 2025Q1

REPORT INFORMATION
  Report Type: Spontaneous
  Country: US (occurrence: US)
  Receive Date: 20250131
  Receipt Date: 20250131
  Transmission Date: 20250409
  Serious: No
  Sender: SANOFI AVENTIS
  Company Number: US-SA-2025SA030764

PATIENT
  Sex: Female
  Weight: 88.64 kg

DRUGS (18)
  1. DUPIXENT [Suspect]
     Active Substance: DUPILUMAB
     Indication: Asthma
     Dosage: 300 MG QOW
     Dates: start: 20190108
  2. VITAMINS [Concomitant]
     Active Substance: VITAMINS
  3. ZINC SULFATE [Concomitant]
     Active Substance: ZINC SULFATE
  4. XARELTO [Concomitant]
     Active Substance: RIVAROXABAN
  5. VITAMIN D3 [Concomitant]
     Active Substance: CHOLECALCIFEROL
  6. VITAMIN B12 [Concomitant]
     Active Substance: CYANOCOBALAMIN
  7. TRELEGY ELLIPTA [Concomitant]
     Active Substance: FLUTICASONE FUROATE\UMECLIDINIUM BROMIDE\VILANTEROL TRIFENATATE
  8. LANREOTIDE ACETATE [Concomitant]
     Active Substance: LANREOTIDE ACETATE
  9. MODERNA COVID-19 VACCINE [Concomitant]
     Active Substance: ELASOMERAN
  10. MELATONIN [Concomitant]
     Active Substance: MELATONIN
  11. FLECAINIDE ACETATE [Concomitant]
     Active Substance: FLECAINIDE ACETATE
  12. FERROUS SULFATE [Concomitant]
     Active Substance: FERROUS SULFATE
  13. ESOMEPRAZOLE MAGNESIUM [Concomitant]
     Active Substance: ESOMEPRAZOLE MAGNESIUM
  14. EPINEPHRINE [Concomitant]
     Active Substance: EPINEPHRINE
  15. ASPIRIN [Concomitant]
     Active Substance: ASPIRIN
  16. ALLEGRA ALLERGY [Concomitant]
     Active Substance: FEXOFENADINE HYDROCHLORIDE
  17. ALBUTEROL SULFATE [Concomitant]
     Active Substance: ALBUTEROL SULFATE
  18. Acid reducer [Concomitant]

REACTIONS (1)
  - Food poisoning [Unknown]
